FAERS Safety Report 7371528-X (Version None)
Quarter: 2011Q1

REPORT INFORMATION
  Report Type: 
  Country: None (occurrence: None)
  Receive Date: 20110324
  Receipt Date: 20110319
  Transmission Date: 20110831
  Serious: Yes (Other)
  Sender: FDA-Public Use
  Company Number: BR-PFIZER INC-2011061227

PATIENT
  Age: 65 Year
  Sex: Female

DRUGS (5)
  1. DIAZEPAM [Concomitant]
     Indication: DEPRESSION
     Dosage: UNK
  2. CALCIUM CITRATE [Concomitant]
     Indication: OSTEOPOROSIS
     Dosage: UNK
  3. PAMELOR [Concomitant]
     Indication: DEPRESSION
     Dosage: UNK
  4. CHAMPIX [Suspect]
     Indication: TOBACCO ABUSE
     Dosage: 0.5 MG, 1X/DAY
     Route: 048
     Dates: start: 20110317
  5. ALENIA [Concomitant]
     Indication: BRONCHITIS
     Dosage: UNK

REACTIONS (6)
  - DRY MOUTH [None]
  - ANXIETY [None]
  - WEIGHT DECREASED [None]
  - DEPRESSED MOOD [None]
  - THIRST [None]
  - DYSGEUSIA [None]
